FAERS Safety Report 19860937 (Version 2)
Quarter: 2021Q4

REPORT INFORMATION
  Report Type: Spontaneous
  Country: JP (occurrence: JP)
  Receive Date: 20210920
  Receipt Date: 20211006
  Transmission Date: 20220303
  Serious: Yes (Other)
  Sender: FDA-Public Use
  Company Number: JP-PFIZER INC-202101163628

PATIENT
  Age: 8 Decade
  Sex: Female

DRUGS (1)
  1. INLYTA [Suspect]
     Active Substance: AXITINIB
     Indication: Renal cell carcinoma
     Dosage: 12 MG, DAILY
     Route: 048

REACTIONS (2)
  - C-reactive protein increased [Recovering/Resolving]
  - Hypertension [Recovering/Resolving]
